FAERS Safety Report 15760163 (Version 1)
Quarter: 2018Q4

REPORT INFORMATION
  Report Type: Spontaneous
  Country: PE (occurrence: PE)
  Receive Date: 20181206
  Receipt Date: 20181206
  Transmission Date: 20190205
  Serious: Yes (Hospitalization)
  Sender: FDA-Public Use
  Company Number: None

PATIENT
  Age: 27 Year
  Sex: Female
  Weight: 50 kg

DRUGS (3)
  1. SALBUTAMOL [Concomitant]
     Active Substance: ALBUTEROL
  2. EFREDINA (EPHEDRINE) [Suspect]
     Active Substance: EPHEDRINE
  3. EPHEDRINE. [Concomitant]
     Active Substance: EPHEDRINE

REACTIONS (3)
  - Euphoric mood [None]
  - Nervousness [None]
  - Hallucination [None]

NARRATIVE: CASE EVENT DATE: 20181028
